FAERS Safety Report 18429305 (Version 1)
Quarter: 2020Q4

REPORT INFORMATION
  Report Type: Spontaneous
  Country: US (occurrence: US)
  Receive Date: 20201026
  Receipt Date: 20201026
  Transmission Date: 20210114
  Serious: Yes (Death, Hospitalization, Other)
  Sender: FDA-Public Use
  Company Number: US-SAGENT PHARMACEUTICALS-2020SAG002246

PATIENT

DRUGS (4)
  1. NOREPINEPHRINE. [Suspect]
     Active Substance: NOREPINEPHRINE
     Indication: VASOPRESSIVE THERAPY
     Dosage: UNK
     Dates: start: 2020
  2. ASPIRIN. [Suspect]
     Active Substance: ASPIRIN
     Indication: ANTICOAGULANT THERAPY
     Dosage: UNK
     Dates: start: 2020
  3. DESMOPRESSIN ACETATE. [Suspect]
     Active Substance: DESMOPRESSIN ACETATE
     Indication: VASOPRESSIVE THERAPY
     Dosage: UNK
     Dates: start: 2020
  4. HEPARIN [Suspect]
     Active Substance: HEPARIN SODIUM
     Indication: ANTICOAGULANT THERAPY
     Dosage: UNK
     Dates: start: 2020

REACTIONS (6)
  - Activated partial thromboplastin time prolonged [Unknown]
  - Product use in unapproved indication [Unknown]
  - Pharyngeal haemorrhage [Recovered/Resolved]
  - Acute kidney injury [Unknown]
  - Respiratory disorder [Fatal]
  - Tongue ulceration [Unknown]

NARRATIVE: CASE EVENT DATE: 2020
